FAERS Safety Report 20061357 (Version 1)
Quarter: 2021Q4

REPORT INFORMATION
  Report Type: Spontaneous
  Country: CN (occurrence: CN)
  Receive Date: 20211112
  Receipt Date: 20211112
  Transmission Date: 20220304
  Serious: No
  Sender: FDA-Public Use
  Company Number: CN-LUPIN PHARMACEUTICALS INC.-2021-21580

PATIENT
  Age: 64 Year
  Sex: Male

DRUGS (11)
  1. METHYLPREDNISOLONE [Suspect]
     Active Substance: METHYLPREDNISOLONE
     Indication: COVID-19
     Dosage: 40 MILLIGRAM
     Route: 065
     Dates: start: 20200213
  2. CHLOROQUINE PHOSPHATE [Suspect]
     Active Substance: CHLOROQUINE PHOSPHATE
     Indication: COVID-19
     Dosage: 500 MILLIGRAM, BID
     Route: 065
     Dates: start: 20200404, end: 20200409
  3. ROKITAMYCIN [Suspect]
     Active Substance: ROKITAMYCIN
     Indication: COVID-19
     Dosage: UNK
     Route: 065
     Dates: start: 20200313, end: 20200322
  4. THYMALFASIN [Suspect]
     Active Substance: THYMALFASIN
     Indication: COVID-19
     Dosage: 1.6 MILLIGRAM; HYPODERMIC
     Route: 065
     Dates: start: 20200410, end: 20200430
  5. INTERFERON ALFA-2A [Suspect]
     Active Substance: INTERFERON ALFA-2A
     Indication: COVID-19
     Dosage: 5 MEGA-INTERNATIONAL UNIT, QD
     Dates: start: 20200516, end: 20200525
  6. BISOPROLOL [Concomitant]
     Active Substance: BISOPROLOL
     Indication: Product used for unknown indication
     Dosage: UNK
     Route: 065
  7. ASPIRIN [Concomitant]
     Active Substance: ASPIRIN
     Indication: Product used for unknown indication
     Dosage: UNK
     Route: 065
  8. ACARBOSE [Concomitant]
     Active Substance: ACARBOSE
     Indication: Product used for unknown indication
     Dosage: UNK
     Route: 065
  9. ATORVASTATIN [Concomitant]
     Active Substance: ATORVASTATIN
     Indication: Product used for unknown indication
     Dosage: UNK
     Route: 065
  10. BICYCLOL [Concomitant]
     Active Substance: BICYCLOL
     Indication: Antiviral prophylaxis
     Dosage: UNK
     Route: 065
     Dates: start: 202002
  11. SILIBININ [Concomitant]
     Active Substance: SILIBININ
     Indication: Antiviral prophylaxis
     Dosage: UNK
     Route: 065
     Dates: start: 202002

REACTIONS (1)
  - Off label use [Unknown]

NARRATIVE: CASE EVENT DATE: 20200213
